FAERS Safety Report 19263672 (Version 1)
Quarter: 2021Q2

REPORT INFORMATION
  Report Type: Spontaneous
  Country: MA (occurrence: MA)
  Receive Date: 20210517
  Receipt Date: 20210517
  Transmission Date: 20210717
  Serious: Yes (Hospitalization, Other)
  Sender: FDA-Public Use
  Company Number: MA-LUPIN PHARMACEUTICALS INC.-2021-06970

PATIENT
  Age: 27 Year
  Sex: Male

DRUGS (3)
  1. AZITHROMYCIN ANHYDROUS. [Suspect]
     Active Substance: AZITHROMYCIN ANHYDROUS
     Indication: COVID-19
     Dosage: UNK
     Route: 065
     Dates: start: 2020
  2. HYDROXYCHLOROQUINE [Suspect]
     Active Substance: HYDROXYCHLOROQUINE
     Indication: COVID-19
     Dosage: UNK
     Route: 065
  3. TENOFOVIR [Concomitant]
     Active Substance: TENOFOVIR
     Indication: HEPATITIS B
     Dosage: UNK
     Route: 065

REACTIONS (2)
  - Off label use [Unknown]
  - Transaminases increased [Recovered/Resolved]

NARRATIVE: CASE EVENT DATE: 2020
